FAERS Safety Report 4509502-0 (Version None)
Quarter: 2004Q4

REPORT INFORMATION
  Report Type: 
  Country: None (occurrence: None)
  Receive Date: 20041119
  Receipt Date: 20041102
  Transmission Date: 20050328
  Serious: Yes (Hospitalization, Other)
  Sender: FDA-Public Use
  Company Number: USA040773206

PATIENT
  Age: 79 Year
  Sex: Female
  Weight: 50 kg

DRUGS (6)
  1. FORTEO [Suspect]
     Indication: OSTEOPOROSIS
     Dosage: 20 UG/1 DAY
     Dates: start: 20040713
  2. VIACTIV [Concomitant]
  3. FOXAMAX (ALENDORNATE SODIUM) [Concomitant]
  4. EXELON (RIVASTIGIMINE TARTRATE) [Concomitant]
  5. MULTIVITAMIN [Concomitant]
  6. ACTONEL 9RISEDRONATE SODIUM) [Concomitant]

REACTIONS (6)
  - FALL [None]
  - NAUSEA [None]
  - PHARMACEUTICAL PRODUCT COMPLAINT [None]
  - RIB FRACTURE [None]
  - URINARY TRACT INFECTION [None]
  - VOMITING [None]
